FAERS Safety Report 9745734 (Version 2)
Quarter: 2013Q4

REPORT INFORMATION
  Report Type: Spontaneous
  Country: CN (occurrence: CN)
  Receive Date: 20131211
  Receipt Date: 20131213
  Transmission Date: 20140711
  Serious: Yes (Hospitalization)
  Sender: FDA-Public Use
  Company Number: CN-SA-2013SA127906

PATIENT
  Age: 62 Year
  Sex: Female
  Weight: 59 kg

DRUGS (9)
  1. CLOPIDOGREL BISULFATE [Suspect]
     Indication: PROPHYLAXIS
     Route: 065
     Dates: start: 201002
  2. ISOSORBIDE MONONITRATE [Concomitant]
  3. METOPROLOL TARTRATE [Concomitant]
  4. PERINDOPRIL [Concomitant]
  5. ASPIRIN [Concomitant]
  6. PANTOPRAZOLE [Concomitant]
  7. SIMVASTATIN [Concomitant]
  8. ACARBOSE [Concomitant]
  9. INSULIN [Concomitant]

REACTIONS (6)
  - Aplasia pure red cell [Recovered/Resolved]
  - Asthenia [Recovered/Resolved]
  - Dizziness [Recovered/Resolved]
  - Reticulocyte count decreased [Recovered/Resolved]
  - Haemoglobin decreased [Recovered/Resolved]
  - Red blood cell count decreased [Recovered/Resolved]
